FAERS Safety Report 8482790-4 (Version None)
Quarter: 2012Q3

REPORT INFORMATION
  Report Type: 
  Country: None (occurrence: None)
  Receive Date: 20120702
  Receipt Date: 20120627
  Transmission Date: 20120928
  Serious: Yes (Other)
  Sender: FDA-Public Use
  Company Number: PHHY2012FR055445

PATIENT
  Age: 56 Year
  Sex: Female

DRUGS (8)
  1. FUROSEMIDE [Concomitant]
  2. LEVOTHYROXINE SODIUM [Concomitant]
  3. VERAPAMIL [Concomitant]
  4. SPIRONOLACTONE [Concomitant]
  5. PREDNISONE [Concomitant]
  6. ATORVASTATIN [Suspect]
  7. SIROLIMUS [Interacting]
     Dosage: UNK
     Dates: start: 20030101, end: 20080201
  8. OMEPRAZOLE [Concomitant]

REACTIONS (5)
  - COUGH [None]
  - DRUG INTERACTION [None]
  - DYSPNOEA EXERTIONAL [None]
  - PNEUMONITIS [None]
  - ALVEOLITIS [None]
